FAERS Safety Report 8861542 (Version 2)
Quarter: 2013Q1

REPORT INFORMATION
  Report Type: Spontaneous
  Country: US (occurrence: None)
  Receive Date: 20121022
  Receipt Date: 20121220
  Transmission Date: 20140127
  Serious: Yes (Other)
  Sender: FDA-Public Use
  Company Number: 2012-501

PATIENT
  Age: 54 Year
  Sex: Female

DRUGS (2)
  1. PRIALT [Suspect]
     Indication: PAIN
     Dosage: UNK MCG, ONCE/HOUR, INTRATHECAL
     Route: 037
  2. DILAUDID [Suspect]
     Dosage: UNK MG, ONCE/HOUR, INTRATHECAL
     Route: 037

REACTIONS (4)
  - Coronary artery stenosis [None]
  - Sluggishness [None]
  - Pain [None]
  - Device computer issue [None]
